FAERS Safety Report 6376901-4 (Version None)
Quarter: 2009Q3

REPORT INFORMATION
  Report Type: 
  Country: None (occurrence: None)
  Receive Date: 20090925
  Receipt Date: 20090825
  Transmission Date: 20100115
  Serious: No
  Sender: FDA-Public Use
  Company Number: US-BAYER-200930999NA

PATIENT
  Age: 57 Year
  Sex: Female

DRUGS (1)
  1. CLIMARA [Suspect]
     Indication: VULVOVAGINAL DRYNESS
     Dosage: 0.025 MG/DAY
     Route: 062

REACTIONS (2)
  - ADVERSE EVENT [None]
  - MAMMOGRAM ABNORMAL [None]
